FAERS Safety Report 5528577-3 (Version None)
Quarter: 2007Q4

REPORT INFORMATION
  Report Type: 
  Country: None (occurrence: None)
  Receive Date: 20071123
  Receipt Date: 20071107
  Transmission Date: 20080405
  Serious: No
  Sender: FDA-Public Use
  Company Number: 2007JP005128

PATIENT
  Age: 15 Year
  Sex: Male
  Weight: 48.9 kg

DRUGS (1)
  1. PROTOPIC [Suspect]
     Dosage: 0.03 %, TOPICAL
     Route: 061

REACTIONS (1)
  - SKIN PAPILLOMA [None]
